FAERS Safety Report 7028433-8 (Version None)
Quarter: 2010Q4

REPORT INFORMATION
  Report Type: 
  Country: None (occurrence: None)
  Receive Date: 20101005
  Receipt Date: 20100922
  Transmission Date: 20110411
  Serious: Yes (Other)
  Sender: FDA-Public Use
  Company Number: DE-ROCHE-730124

PATIENT
  Sex: Female

DRUGS (1)
  1. HERCEPTIN [Suspect]
     Route: 065

REACTIONS (2)
  - LYMPHANGIOSIS CARCINOMATOSA [None]
  - RESPIRATORY DISTRESS [None]
